FAERS Safety Report 7053883-3 (Version None)
Quarter: 2010Q4

REPORT INFORMATION
  Report Type: 
  Country: None (occurrence: None)
  Receive Date: 20101020
  Receipt Date: 20101019
  Transmission Date: 20110411
  Serious: Yes (Other)
  Sender: FDA-Public Use
  Company Number: DE-BRISTOL-MYERS SQUIBB COMPANY-15292790

PATIENT
  Age: 39 Year
  Sex: Female

DRUGS (1)
  1. ABILIFY [Suspect]
     Indication: SCHIZOPHRENIA
     Dosage: DURATION:4 OR 5 YEARS
     Route: 048
     Dates: start: 20060420

REACTIONS (1)
  - NEUROENDOCRINE CARCINOMA [None]
